FAERS Safety Report 16306497 (Version 3)
Quarter: 2021Q2

REPORT INFORMATION
  Report Type: Spontaneous
  Country: US (occurrence: US)
  Receive Date: 20190513
  Receipt Date: 20210524
  Transmission Date: 20210716
  Serious: Yes (Death, Other)
  Sender: FDA-Public Use
  Company Number: US-ASTRAZENECA-2019SE63649

PATIENT
  Age: 19363 Day
  Sex: Male
  Weight: 90.9 kg

DRUGS (71)
  1. PRILOSEC OTC [Suspect]
     Active Substance: OMEPRAZOLE MAGNESIUM
     Indication: GASTROOESOPHAGEAL REFLUX DISEASE
     Route: 048
     Dates: start: 200001, end: 200601
  2. PRILOSEC OTC [Suspect]
     Active Substance: OMEPRAZOLE MAGNESIUM
     Indication: GASTROOESOPHAGEAL REFLUX DISEASE
     Dosage: RECOMENDED DOSAGE
     Route: 048
     Dates: start: 2003, end: 2013
  3. CIMITIDINE [Concomitant]
     Dosage: GENERIC
  4. PROTONIX [Suspect]
     Active Substance: PANTOPRAZOLE SODIUM
     Indication: GASTROOESOPHAGEAL REFLUX DISEASE
     Route: 065
     Dates: end: 2007
  5. OXYCODONE [Concomitant]
     Active Substance: OXYCODONE
  6. AMOXICILLIN. [Concomitant]
     Active Substance: AMOXICILLIN
  7. FUROSEMIDE. [Concomitant]
     Active Substance: FUROSEMIDE
  8. HYDROCODONE/PARACETAMOL [Concomitant]
     Active Substance: ACETAMINOPHEN\HYDROCODONE BITARTRATE
  9. AMOX?CLAV [Concomitant]
     Active Substance: AMOXICILLIN\CLAVULANATE POTASSIUM
  10. FENTANYL. [Concomitant]
     Active Substance: FENTANYL
  11. CLONAZEPAM. [Concomitant]
     Active Substance: CLONAZEPAM
  12. SULFA [Concomitant]
     Active Substance: UNSPECIFIED INGREDIENT
  13. INFLUENZA VACCINE [Concomitant]
     Active Substance: INFLUENZA VIRUS VACCINE
  14. AMBIEN [Concomitant]
     Active Substance: ZOLPIDEM TARTRATE
  15. LURASIDONE HYDROCHLORIDE. [Concomitant]
     Active Substance: LURASIDONE HYDROCHLORIDE
  16. GLIPIZIDE. [Concomitant]
     Active Substance: GLIPIZIDE
     Dates: start: 2012, end: 2013
  17. METOPROLOL TARTRATE. [Concomitant]
     Active Substance: METOPROLOL TARTRATE
  18. SPIRONOLACTONE. [Concomitant]
     Active Substance: SPIRONOLACTONE
  19. LEVOFLOXACIN. [Concomitant]
     Active Substance: LEVOFLOXACIN
  20. TRIAMCINOLONE [Concomitant]
     Active Substance: TRIAMCINOLONE
  21. SIMVASTATIN. [Concomitant]
     Active Substance: SIMVASTATIN
  22. BUPROPION. [Concomitant]
     Active Substance: BUPROPION
  23. FLUTICASONE PROP [Concomitant]
     Active Substance: FLUTICASONE PROPIONATE
  24. CLARITIN [Concomitant]
     Active Substance: LORATADINE
  25. ERYTHROMYCIN. [Concomitant]
     Active Substance: ERYTHROMYCIN
  26. PRILOSEC [Suspect]
     Active Substance: OMEPRAZOLE MAGNESIUM
     Indication: GASTROOESOPHAGEAL REFLUX DISEASE
     Route: 048
     Dates: start: 200001, end: 200601
  27. PENICILLIN VK [Concomitant]
     Active Substance: PENICILLIN V POTASSIUM
  28. HYDROMORPHONE [Concomitant]
     Active Substance: HYDROMORPHONE
  29. PROPARACAINE [Concomitant]
     Active Substance: PROPARACAINE
  30. SODIUM CHLORIDE. [Concomitant]
     Active Substance: SODIUM CHLORIDE
  31. IOPERAMIDE [Concomitant]
  32. PRILOSEC [Suspect]
     Active Substance: OMEPRAZOLE MAGNESIUM
     Indication: GASTROOESOPHAGEAL REFLUX DISEASE
     Dosage: GENERIC
     Route: 065
     Dates: end: 2013
  33. PLAVIX [Concomitant]
     Active Substance: CLOPIDOGREL BISULFATE
  34. ONDANSETRON [Concomitant]
     Active Substance: ONDANSETRON
  35. DOXYCYCLINE HYCLATE. [Concomitant]
     Active Substance: DOXYCYCLINE HYCLATE
  36. ORPHENADRINE CITRATE. [Concomitant]
     Active Substance: ORPHENADRINE CITRATE
  37. GLUCOSE [Concomitant]
     Active Substance: DEXTROSE
  38. COUGH SYRUP [Concomitant]
     Active Substance: DEXTROMETHORPHAN HYDROBROMIDE\GUAIFENESIN
  39. MOTRIN [Concomitant]
     Active Substance: IBUPROFEN
  40. GLYCOPYRROLATE. [Concomitant]
     Active Substance: GLYCOPYRROLATE
  41. DILAUDID [Concomitant]
     Active Substance: HYDROMORPHONE HYDROCHLORIDE
  42. DICYCLOMINE [Concomitant]
     Active Substance: DICYCLOMINE HYDROCHLORIDE
     Indication: IRRITABLE BOWEL SYNDROME
     Dates: start: 20120731
  43. METRONIDAZOLE. [Concomitant]
     Active Substance: METRONIDAZOLE
  44. CLINDAMYCIN. [Concomitant]
     Active Substance: CLINDAMYCIN
  45. FLUOXETINE [Concomitant]
     Active Substance: FLUOXETINE HYDROCHLORIDE
  46. ALCOHOL. [Concomitant]
     Active Substance: ALCOHOL
  47. PRILOSEC [Suspect]
     Active Substance: OMEPRAZOLE MAGNESIUM
     Indication: GASTROOESOPHAGEAL REFLUX DISEASE
     Route: 048
     Dates: start: 2000, end: 2013
  48. HEMORRHOIDCAL [Concomitant]
     Indication: HAEMORRHOIDS
     Dates: start: 2012, end: 2013
  49. ASPIRIN. [Concomitant]
     Active Substance: ASPIRIN
     Indication: CARDIAC DISORDER
     Dates: start: 2009, end: 2013
  50. METFORMIN [Concomitant]
     Active Substance: METFORMIN HYDROCHLORIDE
     Dates: start: 2011
  51. TUMS [Concomitant]
     Active Substance: CALCIUM CARBONATE
     Dosage: 2 TABLETS AS NEEDED
     Dates: end: 2006
  52. PRAVASTATIN. [Concomitant]
     Active Substance: PRAVASTATIN
  53. LISINOPRIL. [Concomitant]
     Active Substance: LISINOPRIL
  54. XIFAXAN [Concomitant]
     Active Substance: RIFAXIMIN
  55. CEPHALEXIN. [Concomitant]
     Active Substance: CEPHALEXIN
  56. KETOCONAZOLE. [Concomitant]
     Active Substance: KETOCONAZOLE
  57. SULFAMETHIZOLE/TRIMETHOPRIM [Concomitant]
     Active Substance: SULFAMETHIZOLE\TRIMETHOPRIM
  58. MORPHINE SULFATE. [Concomitant]
     Active Substance: MORPHINE SULFATE
  59. MULTIVITAMINS [Concomitant]
     Active Substance: VITAMINS
  60. DIPHENHYDRAMINE. [Concomitant]
     Active Substance: DIPHENHYDRAMINE
  61. PREVACID [Suspect]
     Active Substance: LANSOPRAZOLE
     Indication: GASTROOESOPHAGEAL REFLUX DISEASE
     Route: 065
     Dates: start: 2000, end: 2010
  62. NITROGLYCERIN. [Concomitant]
     Active Substance: NITROGLYCERIN
  63. OXYCODONE ACETAMINOPHEN [Concomitant]
     Active Substance: ACETAMINOPHEN\OXYCODONE HYDROCHLORIDE
  64. GENERLAC [Concomitant]
     Active Substance: LACTULOSE
  65. ALBUMIN [Concomitant]
     Active Substance: ALBUMIN HUMAN
  66. PROMETHAZINE HYDROCHLORIDE. [Concomitant]
     Active Substance: PROMETHAZINE HYDROCHLORIDE
  67. PNEUMOCOCCAL VACCINE POLYVALENT NOS [Concomitant]
     Active Substance: PNEUMOCOCCAL VACCINE POLYVALENT
  68. SCOPOLAMINE [Concomitant]
     Active Substance: SCOPOLAMINE
  69. NALOXONE [Concomitant]
     Active Substance: NALOXONE
  70. POLYETHYLENE GLYCOL [Concomitant]
     Active Substance: POLYETHYLENE GLYCOLS
  71. CHOLESTYRAMINE. [Concomitant]
     Active Substance: CHOLESTYRAMINE

REACTIONS (5)
  - Renal failure [Unknown]
  - Acute kidney injury [Fatal]
  - Non-alcoholic steatohepatitis [Fatal]
  - Chronic kidney disease [Unknown]
  - Hyponatraemia [Fatal]

NARRATIVE: CASE EVENT DATE: 20131004
